FAERS Safety Report 24392496 (Version 1)
Quarter: 2024Q4

REPORT INFORMATION
  Report Type: Report from Study
  Country: US (occurrence: US)
  Receive Date: 20241003
  Receipt Date: 20241003
  Transmission Date: 20250114
  Serious: Yes (Other)
  Sender: ROCHE
  Company Number: US-ROCHE-10000089275

PATIENT
  Age: 49 Year
  Sex: Female

DRUGS (13)
  1. OCREVUS [Suspect]
     Active Substance: OCRELIZUMAB
     Indication: Multiple sclerosis
     Route: 042
     Dates: start: 20180313
  2. BACLOFEN [Concomitant]
     Active Substance: BACLOFEN
  3. AMBIEN [Concomitant]
     Active Substance: ZOLPIDEM TARTRATE
  4. GABAPENTIN [Concomitant]
     Active Substance: GABAPENTIN
     Route: 048
  5. LEVOTHYROXINE SODIUM [Concomitant]
     Active Substance: LEVOTHYROXINE SODIUM
  6. TOPIRAMATE [Concomitant]
     Active Substance: TOPIRAMATE
  7. SERTRALINE HYDROCHLORIDE [Concomitant]
     Active Substance: SERTRALINE HYDROCHLORIDE
  8. RIZATRIPTAN BENZOATE [Concomitant]
     Active Substance: RIZATRIPTAN BENZOATE
  9. OXYBUTYNIN CHLORIDE [Concomitant]
     Active Substance: OXYBUTYNIN CHLORIDE
  10. VALTREX [Concomitant]
     Active Substance: VALACYCLOVIR HYDROCHLORIDE
  11. ALPRAZOLAM [Concomitant]
     Active Substance: ALPRAZOLAM
  12. TAMSULOSIN HYDROCHLORIDE [Concomitant]
     Active Substance: TAMSULOSIN HYDROCHLORIDE
  13. ACETAMINOPHEN [Concomitant]
     Active Substance: ACETAMINOPHEN

REACTIONS (29)
  - Post concussion syndrome [Unknown]
  - Fall [Unknown]
  - Head injury [Unknown]
  - Nausea [Unknown]
  - Diplopia [Unknown]
  - Hypersomnia [Unknown]
  - Migraine [Unknown]
  - Confusional state [Unknown]
  - Peripheral vascular disorder [Unknown]
  - Seizure [Unknown]
  - Memory impairment [Unknown]
  - Fatigue [Unknown]
  - Demyelination [Unknown]
  - Blindness [Unknown]
  - Transient ischaemic attack [Unknown]
  - Pain in extremity [Unknown]
  - Lumbar radiculopathy [Unknown]
  - Concussion [Unknown]
  - Epilepsy [Unknown]
  - Headache [Unknown]
  - Neuropathy peripheral [Unknown]
  - Thyroid disorder [Unknown]
  - Cerebrovascular accident [Unknown]
  - Osteoporosis [Unknown]
  - Insomnia [Unknown]
  - Fibromyalgia [Unknown]
  - Fracture [Unknown]
  - Anxiety [Unknown]
  - Artery dissection [Unknown]
